FAERS Safety Report 18295413 (Version 3)
Quarter: 2022Q1

REPORT INFORMATION
  Report Type: Report from Study
  Country: JP (occurrence: JP)
  Receive Date: 20200922
  Receipt Date: 20220302
  Transmission Date: 20220423
  Serious: Yes (Hospitalization)
  Sender: FDA-Public Use
  Company Number: JP-JNJFOC-20200747619

PATIENT
  Age: 4 Decade
  Sex: Male
  Weight: 46 kg

DRUGS (7)
  1. STELARA [Suspect]
     Active Substance: USTEKINUMAB
     Indication: Crohn^s disease
     Dosage: 130MG
     Route: 042
     Dates: start: 20190319, end: 20190319
  2. STELARA [Suspect]
     Active Substance: USTEKINUMAB
     Dosage: 45MG
     Route: 058
     Dates: start: 20190507, end: 20191210
  3. MIYA-BM [Concomitant]
     Active Substance: CLOSTRIDIUM BUTYRICUM SPORES STRAIN M-55
     Indication: Crohn^s disease
     Dosage: FINE GRAIN
     Route: 048
  4. PENTASA [Concomitant]
     Active Substance: MESALAMINE
     Indication: Crohn^s disease
     Route: 048
  5. POLAPREZINC [Concomitant]
     Active Substance: POLAPREZINC
     Indication: Crohn^s disease
     Route: 048
  6. HUMIRA [Concomitant]
     Active Substance: ADALIMUMAB
     Indication: Crohn^s disease
     Route: 058
     Dates: start: 2020
  7. HUMIRA [Concomitant]
     Active Substance: ADALIMUMAB
     Route: 058
     Dates: start: 20140911, end: 2020

REACTIONS (1)
  - IgA nephropathy [Recovering/Resolving]

NARRATIVE: CASE EVENT DATE: 20200107
